FAERS Safety Report 24541964 (Version 1)
Quarter: 2024Q4

REPORT INFORMATION
  Report Type: Spontaneous
  Country: US (occurrence: US)
  Receive Date: 20241023
  Receipt Date: 20241023
  Transmission Date: 20250115
  Serious: Yes (Hospitalization)
  Sender: LUNDBECK
  Company Number: US-LUNDBECK-DKLU4005667

PATIENT

DRUGS (11)
  1. VYEPTI [Suspect]
     Active Substance: EPTINEZUMAB-JJMR
     Indication: Migraine
     Dosage: 100 MILLIGRAM
     Route: 041
     Dates: start: 20240411
  2. VYEPTI [Suspect]
     Active Substance: EPTINEZUMAB-JJMR
     Dosage: 300 MILLIGRAM
     Route: 041
     Dates: start: 20240716
  3. ALPRAZOLAM [Concomitant]
     Active Substance: ALPRAZOLAM
     Indication: Product used for unknown indication
     Dosage: STRENGTH 0.5MG, DOSE 0.5MG QD AS NEEDED
     Route: 048
  4. BACLOFEN [Concomitant]
     Active Substance: BACLOFEN
     Dosage: STRENGTH: 10MG, DOSE 10MG Q8H AS NEEDED
     Route: 048
  5. ACETAMINOPHEN\BUTALBITAL\CAFFEINE [Concomitant]
     Active Substance: ACETAMINOPHEN\BUTALBITAL\CAFFEINE
     Dosage: DOSE 50-300-40MG, QD AS NEEDED
     Route: 048
  6. DULOXETINE HYDROCHLORIDE [Concomitant]
     Active Substance: DULOXETINE HYDROCHLORIDE
     Dosage: 60 MILLIGRAM
     Route: 048
  7. HYDROXYZINE HYDROCHLORIDE [Concomitant]
     Active Substance: HYDROXYZINE HYDROCHLORIDE
     Dosage: STRENGTH 25MG, DOSE 25MG TID AS NEEDED
     Route: 048
  8. LACTULOSE [Concomitant]
     Active Substance: LACTULOSE
     Dosage: STRENGTH 10G/15ML, DOSE 15ML TID
     Route: 048
  9. ONDANSETRON HYDROCHLORIDE [Concomitant]
     Active Substance: ONDANSETRON HYDROCHLORIDE
     Dosage: STRENGTH 8MG, DOSE 8MG BID AS NEEDED
     Route: 048
  10. REXULTI [Concomitant]
     Active Substance: BREXPIPRAZOLE
     Dosage: STRENGTH 3MG, DOSE 3MG QD
     Route: 048
  11. ZTLIDO [Concomitant]
     Active Substance: LIDOCAINE
     Dosage: STRENGTH 1.8 %, DOSE 1.8 % PRN

REACTIONS (3)
  - Hypotension [Unknown]
  - Heart rate variability increased [Unknown]
  - Drug ineffective [Unknown]
